FAERS Safety Report 7931677-1 (Version None)
Quarter: 2011Q4

REPORT INFORMATION
  Report Type: 
  Country: None (occurrence: None)
  Receive Date: 20111121
  Receipt Date: 20111111
  Transmission Date: 20120403
  Serious: Yes (Other)
  Sender: FDA-Public Use
  Company Number: PHHY2011DE099770

PATIENT
  Age: 11 Year
  Sex: Male

DRUGS (1)
  1. SANDIMMUNE [Suspect]
     Indication: PROPHYLAXIS AGAINST TRANSPLANT REJECTION
     Dosage: UNK UKN, UNK
     Route: 048

REACTIONS (5)
  - EYE OEDEMA [None]
  - BENIGN INTRACRANIAL HYPERTENSION [None]
  - INTRACRANIAL PRESSURE INCREASED [None]
  - HAEMORRHAGE [None]
  - INTRAOCULAR PRESSURE INCREASED [None]
